FAERS Safety Report 19250763 (Version 1)
Quarter: 2021Q2

REPORT INFORMATION
  Report Type: Spontaneous
  Country: CN (occurrence: CN)
  Receive Date: 20210512
  Receipt Date: 20210512
  Transmission Date: 20210717
  Serious: Yes (Other)
  Sender: FDA-Public Use
  Company Number: CN-PFIZER INC-2021470811

PATIENT
  Age: 74 Year
  Sex: Male
  Weight: 58 kg

DRUGS (1)
  1. CEFOPERAZONE SODIUM [Suspect]
     Active Substance: CEFOPERAZONE SODIUM
     Indication: CHRONIC OBSTRUCTIVE PULMONARY DISEASE
     Dosage: 2 G, 1X/DAY
     Route: 041
     Dates: start: 20210420, end: 20210420

REACTIONS (4)
  - Off label use [Unknown]
  - Chest discomfort [Recovering/Resolving]
  - Rash erythematous [Recovered/Resolved]
  - Pruritus [Recovering/Resolving]

NARRATIVE: CASE EVENT DATE: 20210420
